FAERS Safety Report 5727727-3 (Version None)
Quarter: 2008Q2

REPORT INFORMATION
  Report Type: 
  Country: None (occurrence: None)
  Receive Date: 20080501
  Receipt Date: 20071106
  Transmission Date: 20081010
  Serious: Yes (Other)
  Sender: FDA-Public Use
  Company Number: PHEH2007US11015

PATIENT
  Age: 80 Year
  Sex: Female
  Weight: 64.4 kg

DRUGS (8)
  1. DIOVAN HCT [Suspect]
     Dosage: 160MG VAL/12.5MG HCG, ORAL
     Route: 048
     Dates: start: 20070427, end: 20070524
  2. AMBIEN [Concomitant]
  3. SINGULAIR [Concomitant]
  4. LEVOXYL [Concomitant]
  5. ZYRTEC [Concomitant]
  6. LASIX [Concomitant]
  7. CARDURA [Concomitant]
  8. POTASSIUM (POTASSIUM) [Concomitant]

REACTIONS (3)
  - COUGH [None]
  - DEPRESSION [None]
  - DRY MOUTH [None]
